FAERS Safety Report 18505004 (Version 1)
Quarter: 2020Q4

REPORT INFORMATION
  Report Type: Spontaneous
  Country: NZ (occurrence: NZ)
  Receive Date: 20201115
  Receipt Date: 20201115
  Transmission Date: 20210114
  Serious: Yes (Other)
  Sender: FDA-Public Use
  Company Number: NZ-ROCHE-2711273

PATIENT
  Sex: Female

DRUGS (2)
  1. RIVOTRIL [Suspect]
     Active Substance: CLONAZEPAM
     Indication: SLEEP DISORDER
     Dosage: 2.5MG/1ML DROPS
     Route: 048
  2. LORAZEPAM. [Suspect]
     Active Substance: LORAZEPAM
     Indication: PRODUCT USED FOR UNKNOWN INDICATION
     Route: 065

REACTIONS (22)
  - Suicidal ideation [Unknown]
  - Intentional product use issue [Unknown]
  - Deafness [Recovering/Resolving]
  - Anger [Unknown]
  - Premenstrual dysphoric disorder [Unknown]
  - Pruritus [Unknown]
  - Illness [Unknown]
  - Dissociation [Unknown]
  - Dyspnoea [Unknown]
  - Anxiety [Unknown]
  - Agoraphobia [Unknown]
  - Intentional self-injury [Unknown]
  - Off label use [Unknown]
  - Psychotic disorder [Unknown]
  - Vertigo [Unknown]
  - Tinnitus [Unknown]
  - Panic attack [Recovering/Resolving]
  - Peripheral swelling [Unknown]
  - Loss of consciousness [Unknown]
  - Amnesia [Unknown]
  - Sensory loss [Unknown]
  - Intentional product misuse [Unknown]

NARRATIVE: CASE EVENT DATE: 20190620
